FAERS Safety Report 20338205 (Version 1)
Quarter: 2022Q1

REPORT INFORMATION
  Report Type: Spontaneous
  Country: JP (occurrence: JP)
  Receive Date: 20220115
  Receipt Date: 20220115
  Transmission Date: 20220423
  Serious: Yes (Death, Other)
  Sender: FDA-Public Use
  Company Number: JP-AMGEN-JPNSP2022006179

PATIENT
  Age: 80 Year
  Sex: Male

DRUGS (2)
  1. APREMILAST [Suspect]
     Active Substance: APREMILAST
     Indication: Pustular psoriasis
     Dosage: UNK
     Route: 048
  2. VITAMIN D3 [Concomitant]
     Active Substance: CHOLECALCIFEROL
     Indication: Psoriasis
     Dosage: UNK

REACTIONS (4)
  - Intra-abdominal haemorrhage [Fatal]
  - Arterial rupture [Fatal]
  - Pustular psoriasis [Unknown]
  - Pyrexia [Recovered/Resolved]
